FAERS Safety Report 5301536-1 (Version None)
Quarter: 2007Q2

REPORT INFORMATION
  Report Type: 
  Country: None (occurrence: None)
  Receive Date: 20070412
  Receipt Date: 20070402
  Transmission Date: 20071010
  Serious: No
  Sender: FDA-Public Use
  Company Number: 2007-156661-NL

PATIENT
  Age: 50 Year
  Sex: Female

DRUGS (4)
  1. MIRTAZAPINE [Suspect]
     Indication: DEPRESSION
     Dosage: 30 MG/15 MG, ORAL
     Route: 048
     Dates: start: 20061101, end: 20070403
  2. MIRTAZAPINE [Suspect]
     Indication: DEPRESSION
     Dosage: 30 MG/15 MG, ORAL
     Route: 048
     Dates: start: 20070404
  3. TIBOLONE [Concomitant]
  4. ROSUVASTATIN CALCIUM [Concomitant]

REACTIONS (2)
  - ELECTROCARDIOGRAM QT CORRECTED INTERVAL PROLONGED [None]
  - OEDEMA PERIPHERAL [None]
